FAERS Safety Report 7355371-3 (Version None)
Quarter: 2011Q1

REPORT INFORMATION
  Report Type: 
  Country: None (occurrence: None)
  Receive Date: 20110316
  Receipt Date: 20110307
  Transmission Date: 20110831
  Serious: Yes (Hospitalization)
  Sender: FDA-Public Use
  Company Number: US-ROCHE-764415

PATIENT
  Sex: Female

DRUGS (9)
  1. BEVACIZUMAB [Suspect]
     Dosage: SECOND CYCLE
     Route: 042
     Dates: start: 20110113, end: 20110115
  2. KEPPRA [Concomitant]
  3. TEMOZOLOMIDE [Suspect]
     Indication: GLIOBLASTOMA
     Route: 065
     Dates: start: 20101203
  4. TEMOZOLOMIDE [Suspect]
     Route: 065
     Dates: start: 20110120, end: 20110131
  5. TEMOZOLOMIDE [Suspect]
     Route: 065
     Dates: start: 20110113, end: 20110115
  6. NORVASC [Concomitant]
  7. VORINOSTAT [Suspect]
     Dosage: FREQUENCY: ONE WEEK ON, ONE WEEK OFF
     Route: 065
     Dates: start: 20110127, end: 20110131
  8. BEVACIZUMAB [Suspect]
     Indication: GLIOBLASTOMA
     Route: 042
     Dates: start: 20101203
  9. VORINOSTAT [Suspect]
     Indication: GLIOBLASTOMA
     Dosage: 1 WEEK ON 1 WEEK OFF
     Route: 065
     Dates: start: 20110113, end: 20110115

REACTIONS (17)
  - MUSCULAR WEAKNESS [None]
  - URINARY INCONTINENCE [None]
  - APHASIA [None]
  - SYNCOPE [None]
  - FALL [None]
  - INFECTION [None]
  - BLOOD PRESSURE INCREASED [None]
  - UPPER LIMB FRACTURE [None]
  - MOBILITY DECREASED [None]
  - DEVICE RELATED INFECTION [None]
  - MEDICAL DEVICE COMPLICATION [None]
  - THROMBOSIS [None]
  - URINARY TRACT INFECTION [None]
  - PLATELET COUNT DECREASED [None]
  - CONVULSION [None]
  - FRACTURE [None]
  - DEEP VEIN THROMBOSIS [None]
